FAERS Safety Report 20907800 (Version 2)
Quarter: 2022Q2

REPORT INFORMATION
  Report Type: Spontaneous
  Country: JP (occurrence: JP)
  Receive Date: 20220602
  Receipt Date: 20220613
  Transmission Date: 20220721
  Serious: Yes (Death, Other)
  Sender: FDA-Public Use
  Company Number: JP-MLMSERVICE-20220525-3569385-1

PATIENT
  Age: 7 Decade
  Sex: Female

DRUGS (4)
  1. PACLITAXEL [Suspect]
     Active Substance: PACLITAXEL
     Dosage: 175 MG/M2 DAY 1 EVERY 21-28 DAYS
  2. CARBOPLATIN [Concomitant]
     Active Substance: CARBOPLATIN
     Indication: Metastases to lung
     Dosage: AREA UNDER THE CONCENTRATION-TIME CURVE 5 DAY 1, EVERY 21-28 DAYS
  3. CARBOPLATIN [Concomitant]
     Active Substance: CARBOPLATIN
     Indication: Endometrial stromal sarcoma
  4. CARBOPLATIN [Concomitant]
     Active Substance: CARBOPLATIN
     Indication: Disease progression

REACTIONS (2)
  - Respiratory failure [Fatal]
  - Peripheral sensory neuropathy [Recovering/Resolving]
